FAERS Safety Report 5031598-0 (Version None)
Quarter: 2006Q2

REPORT INFORMATION
  Report Type: 
  Country: None (occurrence: None)
  Receive Date: 20060616
  Receipt Date: 20060605
  Transmission Date: 20061013
  Serious: Yes (Hospitalization)
  Sender: FDA-Public Use
  Company Number: 2006BI008215

PATIENT
  Sex: Female

DRUGS (2)
  1. ZEVALIN [Suspect]
     Dosage: 1X; IV
     Route: 042
     Dates: start: 20060523, end: 20060523
  2. RITUXIMAB [Concomitant]

REACTIONS (1)
  - SMALL INTESTINAL OBSTRUCTION [None]
